FAERS Safety Report 5457304-3 (Version None)
Quarter: 2007Q3

REPORT INFORMATION
  Report Type: 
  Country: None (occurrence: None)
  Receive Date: 20070918
  Receipt Date: 20070201
  Transmission Date: 20080115
  Serious: No
  Sender: FDA-Public Use
  Company Number: US-ASTRAZENECA-2007UW02299

PATIENT
  Age: 57 Year
  Sex: Male

DRUGS (2)
  1. SEROQUEL [Suspect]
     Route: 048
  2. CHEMOTHERAPY [Concomitant]

REACTIONS (3)
  - HYDRONEPHROSIS [None]
  - RENAL FAILURE [None]
  - URINARY SEDIMENT PRESENT [None]
